FAERS Safety Report 6496407-1 (Version None)
Quarter: 2009Q4

REPORT INFORMATION
  Report Type: 
  Country: None (occurrence: None)
  Receive Date: 20091209
  Receipt Date: 20091124
  Transmission Date: 20100525
  Serious: Yes (Other)
  Sender: FDA-Public Use
  Company Number: 2008000993

PATIENT
  Age: 55 Year
  Sex: Male

DRUGS (3)
  1. ERLOTINIB HYDROCHLORIDE [Suspect]
     Indication: LUNG ADENOCARCINOMA
     Dosage: (150 MG,QD),ORAL
     Route: 048
     Dates: start: 20080305, end: 20080410
  2. JUZENTAIHOTO (JUZENTAIHOTO) [Concomitant]
  3. ALLOPURINOL [Concomitant]

REACTIONS (1)
  - PLATELET COUNT DECREASED [None]
